FAERS Safety Report 22398085 (Version 1)
Quarter: 2023Q2

REPORT INFORMATION
  Report Type: Spontaneous
  Country: CN (occurrence: CN)
  Receive Date: 20230602
  Receipt Date: 20230602
  Transmission Date: 20230721
  Serious: Yes (Other)
  Sender: FDA-Public Use
  Company Number: CN-SUN PHARMACEUTICAL INDUSTRIES LTD-2023R1-390209

PATIENT
  Age: 62 Year
  Sex: Female

DRUGS (2)
  1. OXALIPLATIN [Suspect]
     Active Substance: OXALIPLATIN
     Indication: Gastric cancer
     Dosage: UNK
     Route: 042
  2. MANNITOL [Suspect]
     Active Substance: MANNITOL
     Indication: Gastric cancer
     Dosage: UNK
     Route: 042

REACTIONS (2)
  - Dermatitis exfoliative [Unknown]
  - Dyspnoea [Unknown]
